FAERS Safety Report 7590663-4 (Version None)
Quarter: 2011Q3

REPORT INFORMATION
  Report Type: 
  Country: None (occurrence: None)
  Receive Date: 20110705
  Receipt Date: 20110624
  Transmission Date: 20111222
  Serious: Yes (Other)
  Sender: FDA-Public Use
  Company Number: PHHY2011GB56229

PATIENT
  Age: 90 Year
  Sex: Female

DRUGS (6)
  1. POLYETHYLENE GLYCOL [Concomitant]
  2. MIRTAZAPINE [Concomitant]
  3. ACETAMINOPHEN [Concomitant]
  4. SENNA [Concomitant]
  5. LAMOTRIGINE [Suspect]
     Indication: EPILEPSY
     Dosage: 125 MG/DAY
     Route: 048
  6. QUININE SULFATE [Concomitant]

REACTIONS (4)
  - PNEUMONIA [None]
  - NEUTROPENIA [None]
  - RENAL IMPAIRMENT [None]
  - LEUKOPENIA [None]
